FAERS Safety Report 18640066 (Version 1)
Quarter: 2020Q4

REPORT INFORMATION
  Report Type: Not Available
  Country: US (occurrence: None)
  Receive Date: 20201220
  Receipt Date: 20201220
  Transmission Date: 20210114
  Serious: Yes (Other)
  Sender: FDA-Public Use
  Company Number: US-AKORN PHARMACEUTICALS-2020AKN01360

PATIENT
  Age: 21 Year
  Sex: Male
  Weight: 81 kg

DRUGS (1)
  1. MYORISAN [Suspect]
     Active Substance: ISOTRETINOIN

REACTIONS (5)
  - Aspartate aminotransferase increased [Recovered/Resolved]
  - Blood urea nitrogen/creatinine ratio increased [None]
  - Off label use [Recovered/Resolved]
  - Alanine aminotransferase increased [None]
  - Alopecia [Not Recovered/Not Resolved]

NARRATIVE: CASE EVENT DATE: 20200915
